FAERS Safety Report 4706971-8 (Version None)
Quarter: 2005Q3

REPORT INFORMATION
  Report Type: 
  Country: None (occurrence: None)
  Receive Date: 20050701
  Receipt Date: 20050624
  Transmission Date: 20060218
  Serious: Yes (Death)
  Sender: FDA-Public Use
  Company Number: CERZ-10915

PATIENT
  Age: 68 Year
  Sex: Male

DRUGS (6)
  1. CEREZYME [Suspect]
     Indication: GAUCHER'S DISEASE
     Dosage: 3200 UNITS Q2WKS IV
     Route: 042
     Dates: start: 19971012, end: 20050516
  2. PROCARDIA XL [Concomitant]
  3. COZAAR [Concomitant]
  4. OXYCONTIN [Concomitant]
  5. ZYLOPRIM [Concomitant]
  6. LASIX [Concomitant]

REACTIONS (1)
  - PARKINSON'S DISEASE [None]
